FAERS Safety Report 7597939-5 (Version None)
Quarter: 2011Q3

REPORT INFORMATION
  Report Type: 
  Country: None (occurrence: None)
  Receive Date: 20110708
  Receipt Date: 20110701
  Transmission Date: 20111222
  Serious: Yes (Hospitalization)
  Sender: FDA-Public Use
  Company Number: FR-PFIZER INC-2011147693

PATIENT
  Age: 85 Year
  Sex: Female

DRUGS (8)
  1. XANAX [Suspect]
     Indication: DEPRESSION
     Dosage: 0.25 MG, UNK
     Route: 048
  2. XANAX [Suspect]
     Dosage: 0.25MG, (1/2-0-1/2)
  3. ESCITALOPRAM [Suspect]
     Indication: DEPRESSION
     Dosage: 10 MG, UNK
     Route: 048
  4. ACTONEL [Concomitant]
     Dosage: 75 MG, 150MG MONTHLY
     Route: 048
  5. PARACETAMOL [Concomitant]
     Dosage: UNK
  6. IMOVANE [Suspect]
     Dosage: 7.5 MG, (0-0-1/2)
  7. TRAMADOL HCL [Suspect]
  8. IMOVANE [Suspect]
     Indication: DEPRESSION
     Dosage: 7.5 MG, 1X/DAY
     Route: 048

REACTIONS (1)
  - FALL [None]
